FAERS Safety Report 6154150-2 (Version None)
Quarter: 2009Q2

REPORT INFORMATION
  Report Type: 
  Country: None (occurrence: None)
  Receive Date: 20090414
  Receipt Date: 20090331
  Transmission Date: 20091009
  Serious: Yes (Hospitalization, Other)
  Sender: FDA-Public Use
  Company Number: US-ROCHE-616335

PATIENT
  Sex: Female
  Weight: 80.7 kg

DRUGS (5)
  1. CAPECITABINE [Suspect]
     Indication: BREAST CANCER
     Dosage: FREQUENCY: RECEIVED FOR 14 DAYS PER 21 DAYS
     Route: 048
     Dates: start: 20081104, end: 20081201
  2. CAPECITABINE [Suspect]
     Route: 048
     Dates: start: 20081201
  3. DILANTIN [Concomitant]
     Dosage: TAKEN EVERY MORNING
     Dates: start: 20070501
  4. LOVASTATIN [Concomitant]
     Dosage: TAKEN EVERY MORNING
     Dates: start: 20050101
  5. VITAMIN [Concomitant]
     Dosage: DRUG: ONE DAY VIT
     Dates: start: 20040101

REACTIONS (6)
  - ABDOMINAL PAIN [None]
  - BLOOD BILIRUBIN INCREASED [None]
  - BREAST CANCER [None]
  - EYE IRRITATION [None]
  - HOSPITALISATION [None]
  - RASH [None]
